FAERS Safety Report 10189435 (Version 1)
Quarter: 2014Q2

REPORT INFORMATION
  Report Type: Spontaneous
  Country: US (occurrence: US)
  Receive Date: 20140522
  Receipt Date: 20140522
  Transmission Date: 20141212
  Serious: No
  Sender: FDA-Public Use
  Company Number: US-ASTRAZENECA-2013SE64253

PATIENT
  Age: 73 Year
  Sex: Male
  Weight: 104.3 kg

DRUGS (1)
  1. PULMICORT [Suspect]
     Indication: ASTHMA
     Dosage: 180 MCG, 1 PUFF DAILY
     Route: 055
     Dates: start: 20130808

REACTIONS (4)
  - Dysphagia [Unknown]
  - Headache [Unknown]
  - Oropharyngeal pain [Unknown]
  - Off label use [Unknown]
